FAERS Safety Report 7791690-4 (Version None)
Quarter: 2011Q4

REPORT INFORMATION
  Report Type: 
  Country: None (occurrence: None)
  Receive Date: 20111003
  Receipt Date: 20110923
  Transmission Date: 20120403
  Serious: Yes (Hospitalization)
  Sender: FDA-Public Use
  Company Number: US-JNJFOC-20110910785

PATIENT
  Sex: Female
  Weight: 85.73 kg

DRUGS (4)
  1. DURAGESIC-100 [Suspect]
     Indication: RHEUMATOID ARTHRITIS
     Dosage: 100 UG/HR 2 EVERY 48 HOUR
     Route: 062
     Dates: start: 20090101
  2. PERCOCET [Concomitant]
     Indication: PAIN
     Dosage: 5/325MG TABLET/5 325MG /2  EVERY 4 HOURS AS NEEDED
     Route: 048
  3. NEXIUM [Concomitant]
     Indication: GASTROOESOPHAGEAL REFLUX DISEASE
     Dosage: 5/325MG TABLET/5 325MG /2  EVERY 4 HOURS AS NEEDED
     Route: 048
     Dates: start: 20060101, end: 20110101
  4. NEXIUM [Concomitant]
     Indication: HERNIA
     Dosage: 5/325MG TABLET/5 325MG /2  EVERY 4 HOURS AS NEEDED
     Route: 048
     Dates: start: 20060101, end: 20110101

REACTIONS (8)
  - ELECTROLYTE DEPLETION [None]
  - INTESTINAL HAEMORRHAGE [None]
  - BLOOD POTASSIUM DECREASED [None]
  - WEIGHT DECREASED [None]
  - HYPOKINESIA [None]
  - DRUG EFFECT DECREASED [None]
  - SENSORY DISTURBANCE [None]
  - MIGRAINE [None]
